FAERS Safety Report 7591993-2 (Version None)
Quarter: 2011Q2

REPORT INFORMATION
  Report Type: 
  Country: None (occurrence: None)
  Receive Date: 20110627
  Receipt Date: 20110613
  Transmission Date: 20111010
  Serious: Yes (Hospitalization)
  Sender: FDA-Public Use
  Company Number: 2011MA007151

PATIENT
  Age: 85 Year
  Sex: Female

DRUGS (5)
  1. HYDROCHLOROTHIAZIDE [Suspect]
     Indication: HYPERTENSION
  2. AMLODIPINE [Concomitant]
  3. TAMOXIFEN CITRATE [Concomitant]
  4. INSULIN [Concomitant]
  5. DIGOXIN [Concomitant]

REACTIONS (9)
  - RASH [None]
  - ANAPHYLACTIC REACTION [None]
  - HYPERCALCAEMIA [None]
  - DELIRIUM [None]
  - DIZZINESS [None]
  - URINARY TRACT INFECTION [None]
  - ABDOMINAL PAIN [None]
  - PANCREATITIS [None]
  - RENAL IMPAIRMENT [None]
